FAERS Safety Report 10670647 (Version 1)
Quarter: 2014Q4

REPORT INFORMATION
  Report Type: Spontaneous
  Country: FR (occurrence: FR)
  Receive Date: 20141223
  Receipt Date: 20141223
  Transmission Date: 20150529
  Serious: Yes (Hospitalization)
  Sender: FDA-Public Use
  Company Number: FR-ASTRAZENECA-2014SE97403

PATIENT
  Age: 18285 Day
  Sex: Female

DRUGS (8)
  1. RIFAMPICINE [Suspect]
     Active Substance: RIFAMPIN
     Route: 048
     Dates: start: 20140902, end: 20140911
  2. GLUCOPHAGE [Concomitant]
     Active Substance: METFORMIN HYDROCHLORIDE
  3. BACTRIM [Suspect]
     Active Substance: SULFAMETHOXAZOLE\TRIMETHOPRIM
     Route: 048
     Dates: start: 20140902, end: 20140911
  4. INEXIUM [Suspect]
     Active Substance: ESOMEPRAZOLE
     Route: 048
     Dates: start: 20140630, end: 20140924
  5. KEPPRA [Suspect]
     Active Substance: LEVETIRACETAM
     Route: 048
     Dates: start: 20140802, end: 20140924
  6. DIAMICRON [Concomitant]
     Active Substance: GLICLAZIDE
  7. LEXOMIL [Concomitant]
     Active Substance: BROMAZEPAM
     Dosage: IF NEEDED
  8. AMLOR [Concomitant]
     Active Substance: AMLODIPINE BESYLATE

REACTIONS (1)
  - Drug reaction with eosinophilia and systemic symptoms [Recovered/Resolved]

NARRATIVE: CASE EVENT DATE: 20140911
